FAERS Safety Report 19933305 (Version 3)
Quarter: 2021Q4

REPORT INFORMATION
  Report Type: Spontaneous
  Country: DE (occurrence: DE)
  Receive Date: 20211008
  Receipt Date: 20211101
  Transmission Date: 20220303
  Serious: Yes (Other)
  Sender: FDA-Public Use
  Company Number: None

PATIENT
  Age: 45 Year
  Sex: Male
  Weight: 75 kg

DRUGS (2)
  1. OLANZAPINE [Suspect]
     Active Substance: OLANZAPINE
     Indication: Mental disorder
     Dates: start: 2015
  2. RISPERIDONE [Suspect]
     Active Substance: RISPERIDONE
     Indication: Mental disorder
     Dosage: UNKNOWN
     Route: 048
     Dates: start: 20000101, end: 2015

REACTIONS (13)
  - Autonomic nervous system imbalance [Recovered/Resolved with Sequelae]
  - Exercise tolerance decreased [Recovered/Resolved with Sequelae]
  - Mental fatigue [Recovered/Resolved with Sequelae]
  - Arthropathy [Recovered/Resolved with Sequelae]
  - Vomiting [Unknown]
  - Neuralgia [Recovered/Resolved with Sequelae]
  - Disability [Recovered/Resolved with Sequelae]
  - Pain [Recovered/Resolved with Sequelae]
  - Depression [Recovered/Resolved with Sequelae]
  - Intervertebral disc protrusion [Recovered/Resolved with Sequelae]
  - Sleep disorder [Recovered/Resolved with Sequelae]
  - Ehlers-Danlos syndrome [Recovered/Resolved with Sequelae]
  - Tendon rupture [Recovered/Resolved with Sequelae]

NARRATIVE: CASE EVENT DATE: 20180101
